FAERS Safety Report 7849761-X (Version None)
Quarter: 2011Q4

REPORT INFORMATION
  Report Type: 
  Country: None (occurrence: None)
  Receive Date: 20111026
  Receipt Date: 20111018
  Transmission Date: 20120403
  Serious: Yes (Hospitalization)
  Sender: FDA-Public Use
  Company Number: US-BAYER-2011-101630

PATIENT
  Sex: Female

DRUGS (2)
  1. ACETYLSALICYLIC ACID SRT [Concomitant]
     Dosage: UNK, TID
     Route: 048
  2. ALKA-SELTZER ORIGINAL [Suspect]
     Indication: SINUS DISORDER
     Dosage: UNK UNK, TID
     Route: 048

REACTIONS (1)
  - BLOOD DISORDER [None]
